FAERS Safety Report 17846457 (Version 1)
Quarter: 2020Q2

REPORT INFORMATION
  Report Type: Spontaneous
  Country: US (occurrence: US)
  Receive Date: 20200601
  Receipt Date: 20200601
  Transmission Date: 20200714
  Serious: No
  Sender: FDA-Public Use
  Company Number: None

PATIENT
  Age: 67 Year
  Sex: Male
  Weight: 84.29 kg

DRUGS (10)
  1. LIPITOR [Concomitant]
     Active Substance: ATORVASTATIN CALCIUM
  2. LISINOPRIL. [Concomitant]
     Active Substance: LISINOPRIL
  3. CAPECITABINE. [Suspect]
     Active Substance: CAPECITABINE
     Indication: NAUSEA
     Route: 048
     Dates: end: 20200601
  4. XANAX [Concomitant]
     Active Substance: ALPRAZOLAM
  5. METFORMIN [Concomitant]
     Active Substance: METFORMIN HYDROCHLORIDE
  6. ASPIRIN. [Concomitant]
     Active Substance: ASPIRIN
  7. TRISEBA [Concomitant]
  8. MOBIC [Concomitant]
     Active Substance: MELOXICAM
  9. CITALOPRAM [Concomitant]
     Active Substance: CITALOPRAM HYDROBROMIDE
  10. CAPECITABINE. [Suspect]
     Active Substance: CAPECITABINE
     Indication: NAUSEA
     Dates: start: 20200424, end: 20200601

REACTIONS (1)
  - Nasal mucosal ulcer [None]

NARRATIVE: CASE EVENT DATE: 20200601
